FAERS Safety Report 6443008-7 (Version None)
Quarter: 2009Q4

REPORT INFORMATION
  Report Type: 
  Country: None (occurrence: None)
  Receive Date: 20091117
  Receipt Date: 20091106
  Transmission Date: 20100525
  Serious: Yes (Hospitalization, Other)
  Sender: FDA-Public Use
  Company Number: CA-AMGEN-QUU371644

PATIENT
  Sex: Female
  Weight: 70.7 kg

DRUGS (8)
  1. NEUPOGEN [Suspect]
     Indication: CHEMOTHERAPY
     Route: 058
     Dates: start: 20090925, end: 20091026
  2. DOCETAXEL [Suspect]
     Dates: start: 20090909, end: 20090925
  3. NEXIUM [Concomitant]
  4. PROCHLORPERAZINE [Concomitant]
  5. CLONAZEPAM [Concomitant]
  6. DECADRON [Concomitant]
     Dates: start: 20090924, end: 20090925
  7. CYCLOPHOSPHAMIDE [Concomitant]
  8. ADRIAMYCIN PFS [Concomitant]

REACTIONS (10)
  - BACK PAIN [None]
  - BONE PAIN [None]
  - CHILLS [None]
  - DYSPNOEA EXERTIONAL [None]
  - METASTASIS [None]
  - MOUTH HAEMORRHAGE [None]
  - NAUSEA [None]
  - PYREXIA [None]
  - RENAL COLIC [None]
  - VOMITING [None]
